FAERS Safety Report 10146423 (Version 4)
Quarter: 2014Q3

REPORT INFORMATION
  Report Type: Spontaneous
  Country: JP (occurrence: JP)
  Receive Date: 20140501
  Receipt Date: 20140707
  Transmission Date: 20150326
  Serious: Yes (Other)
  Sender: FDA-Public Use
  Company Number: JP-TAKEDA-2014TJP005544

PATIENT
  Age: 53 Year
  Sex: Female

DRUGS (4)
  1. TAKEPRON [Suspect]
     Active Substance: LANSOPRAZOLE
     Indication: PRODUCT USED FOR UNKNOWN INDICATION
     Dosage: 15 MG, QD
     Route: 048
     Dates: start: 20140331, end: 20140403
  2. RAKOOL REISHIPPU [Concomitant]
     Dosage: UNK
     Dates: start: 20140331
  3. FELBINAC [Concomitant]
     Active Substance: FELBINAC
     Dosage: UNK
     Dates: start: 20140403
  4. CELECOXIB. [Suspect]
     Active Substance: CELECOXIB
     Indication: ANALGESIC THERAPY
     Dosage: 400 MG, QD
     Route: 048
     Dates: start: 20140331, end: 20140403

REACTIONS (2)
  - Intentional overdose [Unknown]
  - Conjunctival haemorrhage [Recovered/Resolved]

NARRATIVE: CASE EVENT DATE: 20140403
